FAERS Safety Report 4746964-8 (Version None)
Quarter: 2005Q3

REPORT INFORMATION
  Report Type: 
  Country: None (occurrence: None)
  Receive Date: 20050817
  Receipt Date: 20050728
  Transmission Date: 20060218
  Serious: Yes (Life-Threatening)
  Sender: FDA-Public Use
  Company Number: JP-SANOFI-SYNTHELABO-A01200505301

PATIENT
  Sex: Male

DRUGS (7)
  1. MILRILA [Suspect]
     Indication: DRUG USE FOR UNKNOWN INDICATION
     Route: 041
     Dates: start: 20050623, end: 20050711
  2. MILRILA [Suspect]
     Route: 065
     Dates: start: 20050101
  3. VANCOMYCIN [Suspect]
     Indication: DRUG USE FOR UNKNOWN INDICATION
     Route: 065
     Dates: start: 20050621, end: 20050628
  4. MEROPEN [Suspect]
     Indication: DRUG USE FOR UNKNOWN INDICATION
     Dosage: 2 G
     Route: 065
     Dates: start: 20050708, end: 20050711
  5. FESIN [Suspect]
     Indication: DRUG USE FOR UNKNOWN INDICATION
     Dosage: 40 MG
     Route: 065
     Dates: start: 20050708, end: 20050711
  6. DOPMIN-K [Concomitant]
     Indication: DRUG USE FOR UNKNOWN INDICATION
     Route: 065
     Dates: start: 20050610, end: 20050802
  7. SIGMART [Concomitant]
     Indication: DRUG USE FOR UNKNOWN INDICATION
     Route: 065
     Dates: start: 20050610, end: 20050622

REACTIONS (15)
  - ARTERIOSCLEROSIS [None]
  - BRADYCARDIA [None]
  - DRUG HYPERSENSITIVITY [None]
  - EOSINOPHILIA [None]
  - HAEMODIALYSIS [None]
  - HEPATOMEGALY [None]
  - METABOLIC ACIDOSIS [None]
  - ORGAN FAILURE [None]
  - PNEUMONIA [None]
  - PNEUMONIA BACTERIAL [None]
  - RENAL ABSCESS [None]
  - SHOCK [None]
  - SPLENOMEGALY [None]
  - STAPHYLOCOCCAL SEPSIS [None]
  - THERAPY NON-RESPONDER [None]
